FAERS Safety Report 4706351-5 (Version None)
Quarter: 2005Q2

REPORT INFORMATION
  Report Type: 
  Country: None (occurrence: None)
  Receive Date: 20050629
  Receipt Date: 20050616
  Transmission Date: 20051028
  Serious: Yes (Death, Other)
  Sender: FDA-Public Use
  Company Number: 2005-DE-02292GD

PATIENT
  Age: 21 Year
  Sex: Female

DRUGS (4)
  1. ACETAMINOPHEN [Suspect]
     Indication: HEADACHE
     Dosage: NR (NR), NR
  2. DIAZEPAM [Suspect]
     Indication: CONVULSION
     Dosage: 10 MG (NR), IV
     Route: 042
  3. MAGNESIUM SULFATE [Suspect]
     Indication: CONVULSION
     Dosage: NR (NR), NR
  4. HYDRALAZINE [Concomitant]

REACTIONS (12)
  - BRAIN HERNIATION [None]
  - CEREBRAL HAEMORRHAGE [None]
  - CEREBRAL INFARCTION [None]
  - COAGULOPATHY [None]
  - DEPRESSED LEVEL OF CONSCIOUSNESS [None]
  - DRUG EXPOSURE DURING PREGNANCY [None]
  - GRAND MAL CONVULSION [None]
  - HYDROCEPHALUS [None]
  - INTRACRANIAL PRESSURE INCREASED [None]
  - INTRAVENTRICULAR HAEMORRHAGE [None]
  - MENTAL STATUS CHANGES [None]
  - THERAPY NON-RESPONDER [None]
